FAERS Safety Report 5620215-4 (Version None)
Quarter: 2008Q1

REPORT INFORMATION
  Report Type: 
  Country: None (occurrence: None)
  Receive Date: 20080208
  Receipt Date: 20080205
  Transmission Date: 20080703
  Serious: Yes (Other)
  Sender: FDA-Public Use
  Company Number: A0696790A

PATIENT
  Age: 47 Year
  Sex: Male

DRUGS (1)
  1. ADVAIR DISKUS 100/50 [Suspect]
     Indication: ASTHMA
     Route: 055
     Dates: start: 20070103, end: 20070709

REACTIONS (7)
  - BRONCHOPNEUMONIA [None]
  - DEAFNESS [None]
  - EAR DISORDER [None]
  - FUNGAL INFECTION [None]
  - ORAL FUNGAL INFECTION [None]
  - RESPIRATORY DISORDER [None]
  - SENSATION OF FOREIGN BODY [None]
